FAERS Safety Report 6372727-6 (Version None)
Quarter: 2009Q3

REPORT INFORMATION
  Report Type: 
  Country: None (occurrence: None)
  Receive Date: 20090924
  Receipt Date: 20090316
  Transmission Date: 20100115
  Serious: No
  Sender: FDA-Public Use
  Company Number: US-ASTRAZENECA-2008UW23524

PATIENT
  Age: 55 Year
  Sex: Female

DRUGS (2)
  1. SEROQUEL [Suspect]
     Dosage: 1 TABLET
     Route: 048
     Dates: start: 20040902
  2. SEROQUEL [Suspect]
     Route: 048

REACTIONS (3)
  - ASTHENIA [None]
  - INCORRECT DOSE ADMINISTERED [None]
  - INSOMNIA [None]
